FAERS Safety Report 8285282-0 (Version None)
Quarter: 2012Q2

REPORT INFORMATION
  Report Type: 
  Country: None (occurrence: None)
  Receive Date: 20120413
  Receipt Date: 20120329
  Transmission Date: 20120825
  Serious: Yes (Life-Threatening, Hospitalization, Other)
  Sender: FDA-Public Use
  Company Number: PHFR2011IE03894

PATIENT
  Sex: Female

DRUGS (10)
  1. CLOZARIL [Suspect]
     Indication: SCHIZOPHRENIA
     Dosage: 150MG MANE AND  200MG NOCTE
     Route: 048
  2. CLOZARIL [Suspect]
     Dosage: REDUCED TO 50MG MANE AND 200MG NOCTE
     Route: 048
     Dates: start: 20110614
  3. ASPIRIN [Concomitant]
     Dosage: 75 MG, DAILY
     Route: 048
  4. ARIPIPRAZOLE [Concomitant]
     Indication: SCHIZOPHRENIA
     Dosage: 20 MG, DAILY
     Route: 048
  5. CLOZARIL [Suspect]
     Dosage: 100MG MANE AND 250MG NOCTE
     Route: 048
     Dates: start: 20060724
  6. GALFER [Concomitant]
     Dosage: DAILY
  7. OMEGA-EFA [Concomitant]
     Indication: MENTAL DISORDER
     Dosage: 2 G, DAILY
     Route: 048
  8. LEVOTHYROXINE SODIUM [Concomitant]
     Indication: HYPERTHYROIDISM
     Dosage: 75 MG, DAILY
     Route: 048
  9. ATORVASTATIN [Concomitant]
     Indication: HYPERCHOLESTEROLAEMIA
     Dosage: 20 MG, DAILY
     Route: 048
  10. METFORMIN HCL [Concomitant]
     Indication: TYPE 2 DIABETES MELLITUS
     Dosage: 1500 MG, DAILY
     Route: 048

REACTIONS (8)
  - GENERAL PHYSICAL HEALTH DETERIORATION [None]
  - UNRESPONSIVE TO STIMULI [None]
  - PNEUMONIA ASPIRATION [None]
  - GRAND MAL CONVULSION [None]
  - MENINGIOMA [None]
  - MUSCLE TWITCHING [None]
  - ENCEPHALOPATHY [None]
  - ANTIPSYCHOTIC DRUG LEVEL INCREASED [None]
